FAERS Safety Report 9849366 (Version 1)
Quarter: 2013Q4

REPORT INFORMATION
  Report Type: Spontaneous
  Country: US (occurrence: None)
  Receive Date: 20131224
  Receipt Date: 20131224
  Transmission Date: 20140711
  Serious: Yes (Other)
  Sender: FDA-Public Use
  Company Number: PHEH2013US019310

PATIENT
  Age: 70 Year
  Sex: Female

DRUGS (1)
  1. AFINITOR (RAD) UNKNOWN [Suspect]
     Route: 048

REACTIONS (7)
  - Anaemia [None]
  - Epistaxis [None]
  - Headache [None]
  - Arthralgia [None]
  - Dysgeusia [None]
  - Decreased appetite [None]
  - Abdominal pain upper [None]
